FAERS Safety Report 26108254 (Version 1)
Quarter: 2025Q4

REPORT INFORMATION
  Report Type: Report from Study
  Country: US (occurrence: US)
  Receive Date: 20251201
  Receipt Date: 20251201
  Transmission Date: 20260118
  Serious: Yes (Hospitalization)
  Sender: OTSUKA
  Company Number: US-MMM-Otsuka-FWY0HVJ1

PATIENT
  Age: 58 Year
  Sex: Male

DRUGS (7)
  1. TOLVAPTAN [Suspect]
     Active Substance: TOLVAPTAN
     Indication: Congenital cystic kidney disease
     Dosage: 45 MG, QD (UPON WAKING)
     Dates: start: 20240710
  2. TOLVAPTAN [Suspect]
     Active Substance: TOLVAPTAN
     Dosage: 15 MG, QD (8 H LATER)
     Dates: start: 20240710
  3. Atorvastatin tab 10mg [Concomitant]
     Indication: Product used for unknown indication
     Dosage: 10 MG
     Route: 065
  4. carvedilol tab 3.125mg [Concomitant]
     Indication: Product used for unknown indication
     Dosage: 3.125 MG
     Route: 065
  5. entresto cap 15-16mg [Concomitant]
     Indication: Product used for unknown indication
     Dosage: UNK (15-16 MG)
     Route: 065
  6. Famotidine tab 20mg [Concomitant]
     Indication: Product used for unknown indication
     Dosage: 20 MG
     Route: 065
  7. sodium bicar tab 325mg [Concomitant]
     Indication: Product used for unknown indication
     Dosage: 325 MG
     Route: 065

REACTIONS (4)
  - Cardiac failure congestive [Unknown]
  - Diarrhoea [Unknown]
  - Rash [Unknown]
  - Product dose omission in error [Unknown]

NARRATIVE: CASE EVENT DATE: 20251001
